FAERS Safety Report 8905566 (Version 2)
Quarter: 2013Q1

REPORT INFORMATION
  Report Type: Spontaneous
  Country: US (occurrence: US)
  Receive Date: 20121113
  Receipt Date: 20130226
  Transmission Date: 20140127
  Serious: No
  Sender: FDA-Public Use
  Company Number: US-009507513-1211USA003808

PATIENT
  Age: 30 None
  Sex: Female
  Weight: 65.31 kg

DRUGS (9)
  1. IMPLANON [Suspect]
     Indication: CONTRACEPTION
     Dosage: 2 CAPSULES,
     Route: 059
     Dates: end: 20110320
  2. IMPLANON [Suspect]
     Dosage: 136 MG, UNK
     Route: 059
     Dates: start: 201207, end: 20121101
  3. TOPIRAMATE [Concomitant]
  4. METHOTREXATE [Concomitant]
  5. PLAQUENIL [Concomitant]
  6. IRON (UNSPECIFIED) [Concomitant]
  7. FOLIC ACID [Concomitant]
  8. VITAMIN D (UNSPECIFIED) [Concomitant]
  9. OLUX FOAM [Concomitant]

REACTIONS (3)
  - Headache [Not Recovered/Not Resolved]
  - Overdose [Unknown]
  - Overdose [Unknown]
